FAERS Safety Report 13855306 (Version 2)
Quarter: 2017Q4

REPORT INFORMATION
  Report Type: Spontaneous
  Country: US (occurrence: US)
  Receive Date: 20170810
  Receipt Date: 20171207
  Transmission Date: 20180320
  Serious: No
  Sender: FDA-Public Use
  Company Number: US-VIFOR (INTERNATIONAL) INC.-VIT-2017-04547

PATIENT
  Age: 70 Year
  Sex: Male

DRUGS (18)
  1. NEXIUM [Concomitant]
     Active Substance: ESOMEPRAZOLE MAGNESIUM
  2. AMLODIPINE BESILATE [Concomitant]
     Active Substance: AMLODIPINE BESYLATE
  3. STARLIX [Concomitant]
     Active Substance: NATEGLINIDE
  4. ZANTAC [Concomitant]
     Active Substance: RANITIDINE HYDROCHLORIDE
  5. BYSTOLIC [Concomitant]
     Active Substance: NEBIVOLOL HYDROCHLORIDE
  6. METANX [Concomitant]
     Active Substance: LEVOMEFOLATE CALCIUM\METHYLCOBALAMIN\PYRIDOXAL PHOSPHATE ANHYDROUS
  7. TRADJENTA [Concomitant]
     Active Substance: LINAGLIPTIN
  8. PREDNISONE. [Concomitant]
     Active Substance: PREDNISONE
  9. VELTASSA [Suspect]
     Active Substance: PATIROMER
     Indication: HYPERKALAEMIA
     Route: 048
     Dates: start: 20160617
  10. DIOVAN [Concomitant]
     Active Substance: VALSARTAN
  11. FOLTX [Concomitant]
     Active Substance: CYANOCOBALAMIN CO-57\FOLIC ACID\PYRIDOXINE HYDROCHLORIDE
  12. LIPITOR [Concomitant]
     Active Substance: ATORVASTATIN CALCIUM
  13. VASOTEC [Concomitant]
     Active Substance: ENALAPRIL MALEATE
  14. LOVAZA [Concomitant]
     Active Substance: OMEGA-3-ACID ETHYL ESTERS
  15. VELTASSA [Suspect]
     Active Substance: PATIROMER
     Indication: PRODUCT USED FOR UNKNOWN INDICATION
  16. IMURAN [Concomitant]
     Active Substance: AZATHIOPRINE
  17. MYFORTIC [Concomitant]
     Active Substance: MYCOPHENOLATE SODIUM
  18. NITRO-DUR [Concomitant]
     Active Substance: NITROGLYCERIN

REACTIONS (5)
  - Inappropriate schedule of drug administration [Unknown]
  - Rosacea [Not Recovered/Not Resolved]
  - Inflammation [Not Recovered/Not Resolved]
  - Gluten sensitivity [Unknown]
  - Rash [Unknown]

NARRATIVE: CASE EVENT DATE: 2017
